FAERS Safety Report 5965363-4 (Version None)
Quarter: 2008Q4

REPORT INFORMATION
  Report Type: 
  Country: None (occurrence: None)
  Receive Date: 20081124
  Receipt Date: 20081124
  Transmission Date: 20090506
  Serious: Yes (Other)
  Sender: FDA-Public Use
  Company Number: None

PATIENT
  Sex: Female
  Weight: 70.3075 kg

DRUGS (1)
  1. PENICILLIN VK [Suspect]
     Indication: ORAL SURGERY
     Dosage: 500MG 4X/DAILY PO
     Route: 048
     Dates: start: 20081117, end: 20081121

REACTIONS (2)
  - OESOPHAGEAL PAIN [None]
  - RECTAL HAEMORRHAGE [None]
